FAERS Safety Report 23110254 (Version 1)
Quarter: 2023Q4

REPORT INFORMATION
  Report Type: Spontaneous
  Country: PT (occurrence: PT)
  Receive Date: 20231026
  Receipt Date: 20231026
  Transmission Date: 20240110
  Serious: Yes (Hospitalization, Other)
  Sender: FDA-Public Use
  Company Number: PT-MYLANLABS-2023M1057155

PATIENT
  Age: 71 Year
  Sex: Male

DRUGS (5)
  1. ABIRATERONE [Suspect]
     Active Substance: ABIRATERONE
     Indication: Metastases to lymph nodes
     Dosage: UNK
     Route: 065
  2. ABIRATERONE [Suspect]
     Active Substance: ABIRATERONE
     Indication: Metastases to bone
  3. ABIRATERONE [Suspect]
     Active Substance: ABIRATERONE
     Indication: Prostate cancer stage IV
  4. ABIRATERONE [Suspect]
     Active Substance: ABIRATERONE
     Indication: Metastatic lymphoma
  5. ABIRATERONE [Suspect]
     Active Substance: ABIRATERONE
     Indication: Prostate cancer

REACTIONS (4)
  - Hungry bone syndrome [Unknown]
  - Hypokalaemia [Recovered/Resolved]
  - Oedema peripheral [Unknown]
  - Dyspnoea [Unknown]
